FAERS Safety Report 7655754-8 (Version None)
Quarter: 2011Q3

REPORT INFORMATION
  Report Type: 
  Country: None (occurrence: None)
  Receive Date: 20110728
  Receipt Date: 20110725
  Transmission Date: 20111222
  Serious: Yes (Hospitalization)
  Sender: FDA-Public Use
  Company Number: WAES 1007USA02127

PATIENT
  Age: 60 Year
  Sex: Male

DRUGS (6)
  1. BLINDED THERAPY UNK [Suspect]
     Indication: TYPE 2 DIABETES MELLITUS
     Dosage: /PO
     Route: 048
     Dates: start: 20100701, end: 20100703
  2. ASPIRIN [Concomitant]
  3. METFORMIN HCL [Suspect]
     Indication: TYPE 2 DIABETES MELLITUS
     Dosage: 1000 MG/PO
     Route: 048
  4. NIACIN [Concomitant]
  5. PRINIVIL [Suspect]
     Dosage: /PO
     Route: 048
  6. ZOCOR [Suspect]
     Dosage: /PO
     Route: 048
     Dates: start: 20030101

REACTIONS (2)
  - PANCREATITIS [None]
  - CHEST PAIN [None]
